FAERS Safety Report 5393027-7 (Version None)
Quarter: 2007Q3

REPORT INFORMATION
  Report Type: 
  Country: None (occurrence: None)
  Receive Date: 20070719
  Receipt Date: 20070706
  Transmission Date: 20080115
  Serious: Yes (Hospitalization)
  Sender: FDA-Public Use
  Company Number: 2007-02269

PATIENT
  Age: 75 Year
  Sex: Male
  Weight: 66 kg

DRUGS (3)
  1. VELCADE [Suspect]
     Indication: MULTIPLE MYELOMA
     Dosage: 2.30 MG
     Dates: start: 20070327
  2. GRANISETRON  HCL [Concomitant]
  3. DEXAMETHASONE 0.5MG TAB [Concomitant]

REACTIONS (5)
  - DIARRHOEA [None]
  - ENTEROCOCCAL SEPSIS [None]
  - GASTRITIS HAEMORRHAGIC [None]
  - RENAL FAILURE [None]
  - STAPHYLOCOCCAL INFECTION [None]
